FAERS Safety Report 8309805-8 (Version None)
Quarter: 2012Q2

REPORT INFORMATION
  Report Type: 
  Country: None (occurrence: None)
  Receive Date: 20120425
  Receipt Date: 20120417
  Transmission Date: 20120825
  Serious: Yes (Death, Hospitalization, Other)
  Sender: FDA-Public Use
  Company Number: PHEH2011US010036

PATIENT
  Sex: Male

DRUGS (6)
  1. VINCRISTINE [Concomitant]
  2. ETOPOSIDE [Concomitant]
  3. EXJADE [Suspect]
     Route: 048
  4. ASPARAGINASE [Concomitant]
  5. DECADRON                                /NET/ [Concomitant]
  6. MERCAPTOPURINE [Concomitant]

REACTIONS (6)
  - PYREXIA [None]
  - STRONGYLOIDIASIS [None]
  - MALAISE [None]
  - DIARRHOEA [None]
  - CHRONIC LYMPHOCYTIC LEUKAEMIA REFRACTORY [None]
  - SEPTIC SHOCK [None]
